FAERS Safety Report 18948855 (Version 2)
Quarter: 2021Q2

REPORT INFORMATION
  Report Type: Spontaneous
  Country: TR (occurrence: TR)
  Receive Date: 20210227
  Receipt Date: 20210421
  Transmission Date: 20210717
  Serious: Yes (Death, Other)
  Sender: FDA-Public Use
  Company Number: TR-ACCORD-217963

PATIENT
  Age: 54 Year
  Sex: Male

DRUGS (2)
  1. PACLITAXEL/PACLITAXEL LIPOSOME [Suspect]
     Active Substance: PACLITAXEL
     Indication: LUNG ADENOCARCINOMA STAGE III
  2. CARBOPLATIN. [Suspect]
     Active Substance: CARBOPLATIN
     Indication: LUNG ADENOCARCINOMA STAGE III

REACTIONS (4)
  - Pleural effusion [Fatal]
  - Scedosporium infection [Fatal]
  - Neutropenia [Fatal]
  - Pneumonia [Fatal]
